FAERS Safety Report 23972887 (Version 1)
Quarter: 2024Q2

REPORT INFORMATION
  Report Type: Spontaneous
  Country: CN (occurrence: CN)
  Receive Date: 20240613
  Receipt Date: 20240613
  Transmission Date: 20240716
  Serious: Yes (Other)
  Sender: FDA-Public Use
  Company Number: CN-009507513-2406CHN002844

PATIENT
  Age: 79 Year
  Sex: Female

DRUGS (2)
  1. STEGLATRO [Suspect]
     Active Substance: ERTUGLIFLOZIN PIDOLATE
     Indication: Type 2 diabetes mellitus
     Dosage: 5 MG, QD
     Route: 048
     Dates: start: 20230820, end: 20230823
  2. STEGLATRO [Suspect]
     Active Substance: ERTUGLIFLOZIN PIDOLATE
     Dosage: 5 MG, QD
     Route: 048
     Dates: end: 20240523

REACTIONS (2)
  - Vulvar erosion [Recovering/Resolving]
  - Vulval ulceration [Recovering/Resolving]

NARRATIVE: CASE EVENT DATE: 20230823
